FAERS Safety Report 24718142 (Version 1)
Quarter: 2024Q4

REPORT INFORMATION
  Report Type: Report from Study
  Country: US (occurrence: US)
  Receive Date: 20241210
  Receipt Date: 20241210
  Transmission Date: 20250114
  Serious: Yes (Hospitalization)
  Sender: TAIHO ONCOLOGY INC
  Company Number: US-TAIHOP-2024-011521

PATIENT
  Sex: Female

DRUGS (2)
  1. INQOVI [Suspect]
     Active Substance: CEDAZURIDINE\DECITABINE
     Indication: Myeloproliferative neoplasm
     Dosage: 135 MG (DECITABINE 35 MG + CEDAZURIDINE 100 MG) ONCE A DAY FOR 4 DAYS OF EACH 28-DAY CYCLE; CYCLE UN
     Route: 048
     Dates: start: 202307
  2. NIVESTYM [Concomitant]
     Active Substance: FILGRASTIM-AAFI
     Indication: Product used for unknown indication
     Dosage: PFS 10X0.5ML?INJECT 1 SYRINGE INTO THE SKIN 1 TIME A DAY ON DAYS 6, 7, 8 AND 9 OF EACH 28-DAY CYCLE.

REACTIONS (3)
  - Lung disorder [Unknown]
  - Product use in unapproved indication [Unknown]
  - Inappropriate schedule of product administration [Unknown]
